FAERS Safety Report 8255370-3 (Version None)
Quarter: 2012Q2

REPORT INFORMATION
  Report Type: 
  Country: None (occurrence: None)
  Receive Date: 20120403
  Receipt Date: 20120402
  Transmission Date: 20120825
  Serious: Yes (Other)
  Sender: FDA-Public Use
  Company Number: CA-ABBOTT-12P-028-0899193-00

PATIENT
  Sex: Female
  Weight: 54 kg

DRUGS (1)
  1. HUMIRA [Suspect]
     Indication: ARTHRITIS
     Route: 058
     Dates: start: 20111021

REACTIONS (4)
  - OSTEOPOROSIS [None]
  - LUMBAR VERTEBRAL FRACTURE [None]
  - ADRENAL INSUFFICIENCY [None]
  - BACK PAIN [None]
